FAERS Safety Report 4862211-0 (Version None)
Quarter: 2005Q4

REPORT INFORMATION
  Report Type: 
  Country: None (occurrence: None)
  Receive Date: 20051130
  Receipt Date: 20050815
  Transmission Date: 20060501
  Serious: No
  Sender: FDA-Public Use
  Company Number: A03200502547

PATIENT
  Age: 44 Year
  Sex: Male
  Weight: 123.3784 kg

DRUGS (7)
  1. ELOXATIN [Suspect]
     Indication: COLORECTAL CANCER
     Dosage: 160 MG Q2W - INTRAVENOUS NOS
     Route: 042
     Dates: start: 20050801, end: 20050801
  2. FLUOROURACIL [Concomitant]
  3. LEUCOVORIN [Concomitant]
  4. PARACETAMOL [Concomitant]
  5. DEXAMETHASONE TAB [Concomitant]
  6. DIPHENHYDRAMINE HCL [Concomitant]
  7. CEAFAZOLIN [Concomitant]

REACTIONS (4)
  - FLUSHING [None]
  - NAUSEA [None]
  - PRURITUS [None]
  - RETCHING [None]
